FAERS Safety Report 10900940 (Version 1)
Quarter: 2015Q1

REPORT INFORMATION
  Report Type: Spontaneous
  Country: JP (occurrence: JP)
  Receive Date: 20150310
  Receipt Date: 20150310
  Transmission Date: 20150721
  Serious: Yes (Death)
  Sender: FDA-Public Use
  Company Number: JP-MALLINCKRODT-T201501551

PATIENT
  Age: 58 Year
  Sex: Male
  Weight: 60 kg

DRUGS (31)
  1. METHADONE [Suspect]
     Active Substance: METHADONE HYDROCHLORIDE
     Dosage: 20 MG (40 MG DAILY DOSE)
     Route: 048
     Dates: start: 20141015, end: 20141016
  2. OXYFAST [Concomitant]
     Active Substance: OXYCODONE
     Dosage: 840 MG
     Route: 051
     Dates: start: 20141009, end: 20141026
  3. METHADONE [Suspect]
     Active Substance: METHADONE HYDROCHLORIDE
     Dosage: 15 MG (45 MG DAILY DOSE)
     Route: 048
     Dates: start: 20141016, end: 20141022
  4. MAGLAX [Concomitant]
     Active Substance: MAGNESIUM OXIDE
     Dosage: 1500 MG
     Route: 048
     Dates: end: 20141026
  5. GABAPEN [Concomitant]
     Active Substance: GABAPENTIN
     Dosage: 600 MG
     Route: 048
     Dates: end: 20141026
  6. CALONAL [Concomitant]
     Active Substance: ACETAMINOPHEN
     Dosage: 400 MG
     Route: 048
     Dates: start: 20141010, end: 20141010
  7. ATARAX-P [Concomitant]
     Active Substance: HYDROXYZINE HYDROCHLORIDE
     Dosage: 25 MG
     Route: 051
     Dates: start: 20141010, end: 20141026
  8. DIOVAN [Concomitant]
     Active Substance: VALSARTAN
     Dosage: 80 MG
     Route: 048
     Dates: end: 20141026
  9. RANITIDINE [Concomitant]
     Active Substance: RANITIDINE\RANITIDINE HYDROCHLORIDE
     Dosage: 300 MG
     Route: 048
     Dates: end: 20141026
  10. GLYCERIN. [Concomitant]
     Active Substance: GLYCERIN
     Dosage: 60 ML
     Route: 054
     Dates: start: 20141016, end: 20141025
  11. LOXONIN [Concomitant]
     Active Substance: LOXOPROFEN SODIUM
     Dosage: 180 MG
     Route: 048
     Dates: start: 20141017, end: 20141026
  12. OLIVES [Concomitant]
     Dosage: 480 MG
     Route: 051
     Dates: start: 20141009, end: 20141011
  13. KETALAR [Concomitant]
     Active Substance: KETAMINE HYDROCHLORIDE
     Dosage: 120 MG
     Route: 051
     Dates: start: 20141010, end: 20141010
  14. WYPAX [Concomitant]
     Active Substance: LORAZEPAM
     Dosage: 1.5 MG
     Route: 048
     Dates: end: 20141026
  15. OLIVES [Concomitant]
     Dosage: 720 MG
     Route: 051
     Dates: start: 20141012, end: 20141014
  16. ZOMETA [Concomitant]
     Active Substance: ZOLEDRONIC ACID
     Dosage: 4 MG
     Route: 051
     Dates: start: 20141009, end: 20141009
  17. KETALAR [Concomitant]
     Active Substance: KETAMINE HYDROCHLORIDE
     Dosage: 240 MG
     Route: 051
     Dates: start: 20141011, end: 20141011
  18. KETALAR [Concomitant]
     Active Substance: KETAMINE HYDROCHLORIDE
     Dosage: 360 MG
     Route: 051
     Dates: start: 20141012, end: 20141012
  19. METHADONE [Suspect]
     Active Substance: METHADONE HYDROCHLORIDE
     Indication: CANCER PAIN
     Dosage: 10 MG (30 MG DAILY DOSE)
     Route: 048
     Dates: start: 20141009, end: 20141015
  20. OXYFAST [Concomitant]
     Active Substance: OXYCODONE
     Dosage: 40 MG, PRN
     Route: 051
     Dates: start: 20141010
  21. KETALAR [Concomitant]
     Active Substance: KETAMINE HYDROCHLORIDE
     Dosage: 480 MG
     Route: 051
     Dates: start: 20141013, end: 20141026
  22. HICORT [Concomitant]
     Dosage: 4 MG
     Route: 051
     Dates: start: 20141010, end: 20141026
  23. METHADONE [Suspect]
     Active Substance: METHADONE HYDROCHLORIDE
     Dosage: 20 MG (60 MG DAILY DOSE)
     Route: 048
     Dates: start: 20141022, end: 20141026
  24. ZOLOFT [Concomitant]
     Active Substance: SERTRALINE HYDROCHLORIDE
     Dosage: 100 MG
     Route: 048
     Dates: end: 20141026
  25. GRANDAXIN [Concomitant]
     Active Substance: TOFISOPAM
     Dosage: 150 MG
     Route: 048
     Dates: end: 20141026
  26. MIDAZOLAM [Concomitant]
     Active Substance: MIDAZOLAM\MIDAZOLAM HYDROCHLORIDE
     Dosage: 5 MG
     Route: 051
     Dates: start: 20141026, end: 20141026
  27. MYSLEE [Concomitant]
     Active Substance: ZOLPIDEM TARTRATE
     Dosage: 10 MG
     Route: 048
     Dates: end: 20141026
  28. LAXOBERON [Concomitant]
     Active Substance: SODIUM PICOSULFATE
     Dosage: 10 GTT
     Route: 048
     Dates: end: 20141026
  29. OLIVES [Concomitant]
     Dosage: 960 MG
     Route: 051
     Dates: start: 20141015, end: 20141026
  30. ELIETEN [Concomitant]
     Active Substance: METOCLOPRAMIDE
     Dosage: 10 MG
     Route: 051
     Dates: start: 20141010, end: 20141017
  31. MEROPEN [Concomitant]
     Active Substance: MEROPENEM
     Dosage: 2 DF
     Route: 051
     Dates: start: 20141010, end: 20141023

REACTIONS (1)
  - Lung neoplasm malignant [Fatal]
